FAERS Safety Report 7585070-4 (Version None)
Quarter: 2011Q2

REPORT INFORMATION
  Report Type: 
  Country: None (occurrence: None)
  Receive Date: 20110630
  Receipt Date: 20110627
  Transmission Date: 20111010
  Serious: Yes (Hospitalization)
  Sender: FDA-Public Use
  Company Number: ES-PFIZER INC-2011142502

PATIENT
  Age: 59 Year
  Sex: Male

DRUGS (2)
  1. PREGABALIN [Suspect]
     Indication: NEURALGIA
     Dosage: 25 MG, 2X/DAY
  2. ALLOPURINOL [Concomitant]
     Indication: GOUT

REACTIONS (2)
  - OEDEMA PERIPHERAL [None]
  - HEPATOTOXICITY [None]
